FAERS Safety Report 5885732-0 (Version None)
Quarter: 2008Q3

REPORT INFORMATION
  Report Type: 
  Country: None (occurrence: None)
  Receive Date: 20080916
  Receipt Date: 20080904
  Transmission Date: 20090109
  Serious: Yes (Other)
  Sender: FDA-Public Use
  Company Number: JP-ELI_LILLY_AND_COMPANY-JP200809001429

PATIENT
  Age: 57 Year
  Sex: Female

DRUGS (6)
  1. HUMALOG [Suspect]
     Indication: DIABETES MELLITUS
  2. HUMALOG [Suspect]
     Dosage: 8 U, DAILY (1/D)
     Route: 058
     Dates: end: 20080903
  3. HUMALOG [Suspect]
     Dosage: 9 U, EACH EVENING
     Route: 058
     Dates: end: 20080903
  4. HUMALOG [Suspect]
     Dosage: 10 U, EACH MORNING
     Route: 058
     Dates: start: 20080904, end: 20080904
  5. INNOLET N [Concomitant]
     Indication: DIABETES MELLITUS
     Dosage: 8 U, DAILY (1/D)
     Route: 058
  6. AMARYL [Concomitant]
     Indication: DIABETES MELLITUS
     Dosage: 0.5 MG, DAILY (1/D)
     Route: 048

REACTIONS (1)
  - HYPERGLYCAEMIA [None]
